FAERS Safety Report 7471147-0 (Version None)
Quarter: 2011Q2

REPORT INFORMATION
  Report Type: 
  Country: None (occurrence: None)
  Receive Date: 20110510
  Receipt Date: 20110504
  Transmission Date: 20111010
  Serious: Yes (Life-Threatening, Hospitalization, Other)
  Sender: FDA-Public Use
  Company Number: US-GILEAD-2011-0035921

PATIENT
  Sex: Female

DRUGS (2)
  1. ADCIRCA [Concomitant]
     Indication: PULMONARY HYPERTENSION
     Dates: start: 20101201, end: 20110101
  2. LETAIRIS [Suspect]
     Indication: PULMONARY ARTERIAL HYPERTENSION
     Route: 048
     Dates: start: 20101117, end: 20110101

REACTIONS (3)
  - RENAL FAILURE [None]
  - ORGAN FAILURE [None]
  - PULMONARY HYPERTENSION [None]
